FAERS Safety Report 5808274-7 (Version None)
Quarter: 2008Q3

REPORT INFORMATION
  Report Type: 
  Country: None (occurrence: None)
  Receive Date: 20080709
  Receipt Date: 20080627
  Transmission Date: 20090109
  Serious: Yes (Other)
  Sender: FDA-Public Use
  Company Number: 2008-179984-NL

PATIENT
  Age: 35 Year
  Sex: Female
  Weight: 57.6 kg

DRUGS (1)
  1. NUVARING [Suspect]
     Indication: CONTRACEPTION
     Dosage: 3 WEEKS IN, 1 WEEK OUT
     Dates: start: 20060101, end: 20080501

REACTIONS (1)
  - CERVICAL DYSPLASIA [None]
